FAERS Safety Report 9387976 (Version 2)
Quarter: 2013Q3

REPORT INFORMATION
  Report Type: Spontaneous
  Country: FR (occurrence: FR)
  Receive Date: 20130708
  Receipt Date: 20130719
  Transmission Date: 20140515
  Serious: Yes (Hospitalization, Other)
  Sender: FDA-Public Use
  Company Number: FR-TEVA-417208ISR

PATIENT
  Age: 2 Year
  Sex: Female
  Weight: 13 kg

DRUGS (12)
  1. VINCRISTINE TEVA 0.1% (1MG/1ML) [Suspect]
     Indication: EWING^S SARCOMA
     Dosage: 1.5 MG/M2 DAILY; VIDE PROTOCOL
     Route: 042
     Dates: start: 20130514, end: 20130514
  2. DOXORUBICIN TEVA [Suspect]
     Indication: EWING^S SARCOMA
     Dosage: 20 MG/M2 DAILY; VIDE PROTOCOL
     Route: 042
     Dates: start: 20130514, end: 20130516
  3. HOLOXAN [Suspect]
     Indication: EWING^S SARCOMA
     Dosage: 3000 MG/M2 DAILY; VIDE PROTOCOL
     Route: 042
     Dates: start: 20130514, end: 20130516
  4. ETOPOPHOS [Suspect]
     Indication: EWING^S SARCOMA
     Dosage: 150 MG/M2 DAILY; VIDE PROTOCOL
     Route: 042
     Dates: start: 20130514, end: 20130516
  5. TAZOCILLINE [Concomitant]
     Route: 042
     Dates: start: 20130523, end: 20130527
  6. GRANOCYTE [Concomitant]
     Dosage: 5 MICROGRAM/KG DAILY;
     Route: 042
     Dates: start: 20130523, end: 20130528
  7. BICARBONATE (UNKNOWN BRAND NAME) [Concomitant]
  8. ELUDRIL [Concomitant]
     Dosage: 4 DOSAGE FORMS DAILY;
     Route: 048
  9. BACTRIM [Concomitant]
     Route: 048
  10. ZOPHREN [Concomitant]
     Dosage: DURING THE COURSES
  11. DOLIPRANE [Concomitant]
     Dosage: 4 DOSAGE FORMS DAILY; 1 DOSE FOR 12 KG ORALLY 4 TIMES A DAY IF NEEDED
     Route: 048
  12. CODENFAN [Concomitant]
     Dosage: 7 MG ORALLY 4 TIMES A DAY IF NEEDED.
     Route: 048

REACTIONS (2)
  - Palmar-plantar erythrodysaesthesia syndrome [Not Recovered/Not Resolved]
  - Febrile bone marrow aplasia [Recovered/Resolved]
